FAERS Safety Report 14961314 (Version 1)
Quarter: 2018Q2

REPORT INFORMATION
  Report Type: Spontaneous
  Country: JP (occurrence: JP)
  Receive Date: 20180601
  Receipt Date: 20180601
  Transmission Date: 20180711
  Serious: Yes (Hospitalization)
  Sender: FDA-Public Use
  Company Number: JP-ROCHE-2132104

PATIENT
  Age: 81 Year
  Sex: Male
  Weight: 47 kg

DRUGS (6)
  1. COLDRIN (JAPAN) [Concomitant]
     Active Substance: CHLOPHEDIANOL HYDROCHLORIDE
     Dosage: DOSAGE IS UNCERTAIN.
     Route: 065
     Dates: start: 20180103
  2. ALECENSA [Suspect]
     Active Substance: ALECTINIB HYDROCHLORIDE
     Indication: LUNG ADENOCARCINOMA
     Route: 048
     Dates: start: 20171226, end: 20180322
  3. LANSOPRAZOLE. [Concomitant]
     Active Substance: LANSOPRAZOLE
     Dosage: DOSAGE IS UNCERTAIN.
     Route: 065
     Dates: start: 20180104
  4. ULTIBRO [Concomitant]
     Active Substance: GLYCOPYRRONIUM\INDACATEROL
     Dosage: DOSAGE IS UNCERTAIN.
     Route: 065
     Dates: start: 20171116
  5. FEBURIC [Concomitant]
     Active Substance: FEBUXOSTAT
     Dosage: DOSAGE IS UNCERTAIN.
     Route: 065
     Dates: start: 20180105
  6. FEXOFENADINE HYDROCHLORIDE. [Concomitant]
     Active Substance: FEXOFENADINE HYDROCHLORIDE
     Dosage: DOSAGE IS UNCERTAIN.
     Route: 065
     Dates: start: 20180125

REACTIONS (2)
  - Drug eruption [Not Recovered/Not Resolved]
  - Pneumonia [Recovering/Resolving]

NARRATIVE: CASE EVENT DATE: 20180118
